FAERS Safety Report 7029811-3 (Version None)
Quarter: 2010Q4

REPORT INFORMATION
  Report Type: 
  Country: None (occurrence: None)
  Receive Date: 20101006
  Receipt Date: 20100927
  Transmission Date: 20110411
  Serious: Yes (Hospitalization, Other)
  Sender: FDA-Public Use
  Company Number: US-BIOGENIDEC-2010BI029927

PATIENT
  Age: 54 Year
  Sex: Female
  Weight: 99 kg

DRUGS (3)
  1. TYSABRI [Suspect]
     Indication: MULTIPLE SCLEROSIS
     Route: 042
     Dates: start: 20100305, end: 20100723
  2. ACYCLOVIR SODIUM [Concomitant]
     Indication: ANTIVIRAL PROPHYLAXIS
  3. TUMS (CALCIUM CARBONATE) [Concomitant]
     Indication: OSTEOPOROSIS

REACTIONS (26)
  - BLEPHAROSPASM [None]
  - BLOOD PRESSURE FLUCTUATION [None]
  - BONE PAIN [None]
  - CARDIAC ARREST [None]
  - CHRONIC FATIGUE SYNDROME [None]
  - DEHYDRATION [None]
  - DEPRESSION [None]
  - DIZZINESS [None]
  - DRUG INEFFECTIVE [None]
  - DYSARTHRIA [None]
  - DYSPHEMIA [None]
  - GASTRITIS EROSIVE [None]
  - HEADACHE [None]
  - HEARING IMPAIRED [None]
  - HYPOGLYCAEMIA [None]
  - MASTOIDITIS [None]
  - MEMORY IMPAIRMENT [None]
  - MUSCLE TWITCHING [None]
  - MYALGIA [None]
  - NYSTAGMUS [None]
  - OSTEONECROSIS [None]
  - OSTEOPOROSIS [None]
  - SINUSITIS [None]
  - TENDONITIS [None]
  - TRANSIENT ISCHAEMIC ATTACK [None]
  - URINARY TRACT INFECTION [None]
